FAERS Safety Report 11214702 (Version 2)
Quarter: 2015Q3

REPORT INFORMATION
  Report Type: Report from Study
  Country: CA (occurrence: CA)
  Receive Date: 20150624
  Receipt Date: 20150916
  Transmission Date: 20151125
  Serious: Yes (Hospitalization)
  Sender: FDA-Public Use
  Company Number: CA-ROCHE-1590517

PATIENT
  Age: 34 Year
  Sex: Female
  Weight: 58.3 kg

DRUGS (18)
  1. TRASTUZUMAB EMTANSINE [Suspect]
     Active Substance: ADO-TRASTUZUMAB EMTANSINE
     Dosage: CYCLE 5
     Route: 042
     Dates: start: 20141230
  2. TRASTUZUMAB EMTANSINE [Suspect]
     Active Substance: ADO-TRASTUZUMAB EMTANSINE
     Dosage: CYCLE 2
     Route: 042
     Dates: start: 20141028
  3. TRASTUZUMAB EMTANSINE [Suspect]
     Active Substance: ADO-TRASTUZUMAB EMTANSINE
     Dosage: CYCLE 7
     Route: 042
     Dates: start: 20150210
  4. TRASTUZUMAB EMTANSINE [Suspect]
     Active Substance: ADO-TRASTUZUMAB EMTANSINE
     Dosage: CYCLE 10
     Route: 042
     Dates: start: 20150414
  5. POLYSPORIN (BACITRACIN ZINC/POLYMYXIN B SULFATE) [Concomitant]
     Indication: SINUS DISORDER
     Route: 065
     Dates: start: 20140906
  6. TRASTUZUMAB EMTANSINE [Suspect]
     Active Substance: ADO-TRASTUZUMAB EMTANSINE
     Indication: HER-2 POSITIVE BREAST CANCER
     Dosage: CYCLE 1 ?DATE OF LAST DOSE PRIOR TO SAE ON 26/MAY/2015 (CYCLE 12)?DRUG INTERRUPTED ON: 05/JUN/2015
     Route: 042
     Dates: start: 20141006
  7. TRASTUZUMAB EMTANSINE [Suspect]
     Active Substance: ADO-TRASTUZUMAB EMTANSINE
     Dosage: CYCLE 12
     Route: 042
     Dates: start: 20150526, end: 20150605
  8. TRASTUZUMAB EMTANSINE [Suspect]
     Active Substance: ADO-TRASTUZUMAB EMTANSINE
     Dosage: CYCLE 3
     Route: 042
     Dates: start: 20141118
  9. TRASTUZUMAB EMTANSINE [Suspect]
     Active Substance: ADO-TRASTUZUMAB EMTANSINE
     Dosage: CYCLE 4
     Route: 042
     Dates: start: 20141209
  10. TRASTUZUMAB EMTANSINE [Suspect]
     Active Substance: ADO-TRASTUZUMAB EMTANSINE
     Dosage: CYCLE 6
     Route: 042
     Dates: start: 20150120
  11. TRASTUZUMAB EMTANSINE [Suspect]
     Active Substance: ADO-TRASTUZUMAB EMTANSINE
     Dosage: CYCLE 8
     Route: 042
     Dates: start: 20150303
  12. TRASTUZUMAB EMTANSINE [Suspect]
     Active Substance: ADO-TRASTUZUMAB EMTANSINE
     Dosage: CYCLE 11
     Route: 042
     Dates: start: 20150505
  13. EXEMESTANE. [Suspect]
     Active Substance: EXEMESTANE
     Indication: HORMONE THERAPY
     Route: 065
     Dates: start: 20150221
  14. TRASTUZUMAB EMTANSINE [Suspect]
     Active Substance: ADO-TRASTUZUMAB EMTANSINE
     Dosage: CYCLE 9
     Route: 042
     Dates: start: 20150324
  15. GOSERELIN [Suspect]
     Active Substance: GOSERELIN
     Indication: PRODUCT USED FOR UNKNOWN INDICATION
     Route: 065
  16. POLYSPORIN (BACITRACIN ZINC/POLYMYXIN B SULFATE) [Concomitant]
     Indication: WOUND DEHISCENCE
     Route: 065
     Dates: start: 20150511
  17. ZOFRAN [Concomitant]
     Active Substance: ONDANSETRON HYDROCHLORIDE
     Indication: NAUSEA
     Dosage: 4-8 MG
     Route: 065
     Dates: start: 20141230
  18. MELATONIN [Concomitant]
     Active Substance: MELATONIN
     Indication: INSOMNIA
     Route: 065
     Dates: start: 20150413

REACTIONS (1)
  - Wound dehiscence [Recovered/Resolved]

NARRATIVE: CASE EVENT DATE: 20150604
